FAERS Safety Report 13628495 (Version 10)
Quarter: 2022Q1

REPORT INFORMATION
  Report Type: Spontaneous
  Country: US (occurrence: US)
  Receive Date: 20170608
  Receipt Date: 20220302
  Transmission Date: 20220423
  Serious: Yes (Other)
  Sender: FDA-Public Use
  Company Number: US-PFIZER INC-2017249384

PATIENT
  Age: 74 Year
  Sex: Female
  Weight: 87.09 kg

DRUGS (3)
  1. DETROL LA [Suspect]
     Active Substance: TOLTERODINE TARTRATE
     Indication: Neurogenic bladder
     Dosage: 4 MG, 1X/DAY
     Route: 048
     Dates: start: 20150914
  2. DETROL LA [Suspect]
     Active Substance: TOLTERODINE TARTRATE
     Indication: Urinary incontinence
     Dosage: 4 MG, DAILY
     Route: 048
     Dates: end: 201903
  3. DETROL LA [Suspect]
     Active Substance: TOLTERODINE TARTRATE
     Indication: Pollakiuria

REACTIONS (7)
  - Kidney infection [Recovered/Resolved]
  - Product dose omission issue [Unknown]
  - Product supply issue [Unknown]
  - Fungal infection [Recovered/Resolved]
  - Illness [Unknown]
  - Chromaturia [Unknown]
  - Urine odour abnormal [Unknown]
